FAERS Safety Report 16046828 (Version 2)
Quarter: 2019Q4

REPORT INFORMATION
  Report Type: Spontaneous
  Country: US (occurrence: US)
  Receive Date: 20190307
  Receipt Date: 20191223
  Transmission Date: 20200122
  Serious: No
  Sender: FDA-Public Use
  Company Number: US-PFIZER INC-2019095227

PATIENT
  Age: 64 Year
  Sex: Male
  Weight: 90.72 kg

DRUGS (1)
  1. LYRICA [Suspect]
     Active Substance: PREGABALIN
     Indication: NEUROPATHY PERIPHERAL
     Dosage: 200 MG, 3X/DAY

REACTIONS (6)
  - Withdrawal syndrome [Unknown]
  - Pain [Unknown]
  - Tremor [Unknown]
  - Agitation [Unknown]
  - Crying [Unknown]
  - Screaming [Unknown]
